FAERS Safety Report 17785892 (Version 2)
Quarter: 2020Q2

REPORT INFORMATION
  Report Type: Report from Study
  Country: US (occurrence: US)
  Receive Date: 20200513
  Receipt Date: 20200625
  Transmission Date: 20200714
  Serious: Yes (Hospitalization)
  Sender: FDA-Public Use
  Company Number: US-ACTELION-A-NJ2020-204932

PATIENT
  Age: 82 Year
  Sex: Female

DRUGS (19)
  1. PREDNISONE. [Concomitant]
     Active Substance: PREDNISONE
  2. IRON [Concomitant]
     Active Substance: IRON
  3. COQ 10 [Concomitant]
     Active Substance: UBIDECARENONE
  4. POTASSIUM [Concomitant]
     Active Substance: POTASSIUM
  5. ASPIRIN (E.C.) [Concomitant]
     Active Substance: ASPIRIN
  6. ALLOPURINOL. [Concomitant]
     Active Substance: ALLOPURINOL
  7. LEVOTHYROXINE. [Concomitant]
     Active Substance: LEVOTHYROXINE
  8. METHOTREXATE. [Concomitant]
     Active Substance: METHOTREXATE
  9. LOSARTAN. [Concomitant]
     Active Substance: LOSARTAN
  10. MINOXIDIL. [Concomitant]
     Active Substance: MINOXIDIL
  11. SIMVASTATIN. [Concomitant]
     Active Substance: SIMVASTATIN
  12. OPSUMIT [Suspect]
     Active Substance: MACITENTAN
     Dosage: UNK
     Route: 048
     Dates: start: 20200422
  13. MICARDIS [Concomitant]
     Active Substance: TELMISARTAN
  14. HYDRALAZINE [Concomitant]
     Active Substance: HYDRALAZINE HYDROCHLORIDE
  15. VERAPAMIL [Concomitant]
     Active Substance: VERAPAMIL HYDROCHLORIDE
  16. CLONIDINE. [Concomitant]
     Active Substance: CLONIDINE
  17. TYLENOL [Concomitant]
     Active Substance: ACETAMINOPHEN
  18. OPSUMIT [Suspect]
     Active Substance: MACITENTAN
     Indication: PULMONARY ARTERIAL HYPERTENSION
     Dosage: 10 MG, QD
     Route: 048
     Dates: start: 202003
  19. METOPROLOL. [Concomitant]
     Active Substance: METOPROLOL

REACTIONS (4)
  - Hospitalisation [Unknown]
  - Nasal congestion [Unknown]
  - Pneumonia [Unknown]
  - Dyspnoea [Unknown]

NARRATIVE: CASE EVENT DATE: 20200428
